FAERS Safety Report 13637952 (Version 1)
Quarter: 2017Q2

REPORT INFORMATION
  Report Type: Spontaneous
  Country: US (occurrence: US)
  Receive Date: 20170609
  Receipt Date: 20170609
  Transmission Date: 20170830
  Serious: Yes (Other)
  Sender: FDA-Public Use
  Company Number: PHHY2017US080247

PATIENT
  Age: 25 Year
  Sex: Male

DRUGS (1)
  1. LANSOPRAZOLE. [Suspect]
     Active Substance: LANSOPRAZOLE
     Indication: PEPTIC ULCER
     Dosage: 60 MG, BID
     Route: 065

REACTIONS (3)
  - Feeding disorder [Unknown]
  - Abdominal pain [Unknown]
  - Blood gastrin increased [Unknown]
